FAERS Safety Report 7711389-X (Version None)
Quarter: 2011Q3

REPORT INFORMATION
  Report Type: 
  Country: None (occurrence: None)
  Receive Date: 20110817
  Receipt Date: 20110811
  Transmission Date: 20111222
  Serious: Yes (Hospitalization)
  Sender: FDA-Public Use
  Company Number: 2011029169

PATIENT
  Age: 13 Year

DRUGS (6)
  1. MUCODYNE (CARBOCISTEINE) [Concomitant]
  2. IBUPROFEN [Concomitant]
  3. IMMUNE GLOBULIN (HUMAN) [Suspect]
     Indication: BRUTON'S AGAMMAGLOBULINAEMIA
  4. ASTOMIN (DIMEMORFAN PHOSPHATE) [Concomitant]
  5. VATREX (VALACICLOVIR HYDROCHLORIDE) [Concomitant]
  6. INTAL [Concomitant]

REACTIONS (40)
  - DIARRHOEA [None]
  - SCAB [None]
  - DYSTONIA [None]
  - MUSCLE RIGIDITY [None]
  - ENCEPHALITIS ENTEROVIRAL [None]
  - SOMNOLENCE [None]
  - HERPES ZOSTER OTICUS [None]
  - DYSARTHRIA [None]
  - NASAL MUCOSAL HYPERTROPHY [None]
  - CENTRAL NERVOUS SYSTEM LESION [None]
  - PYREXIA [None]
  - TINNITUS [None]
  - TREMOR [None]
  - VIRAL INFECTION [None]
  - BLISTER [None]
  - ABDOMINAL PAIN [None]
  - NYSTAGMUS [None]
  - ANXIETY [None]
  - MENINGITIS ASEPTIC [None]
  - DYSKINESIA [None]
  - PAIN IN EXTREMITY [None]
  - MUSCULOSKELETAL STIFFNESS [None]
  - DECREASED APPETITE [None]
  - EYE MOVEMENT DISORDER [None]
  - CLONUS [None]
  - MUSCLE SPASTICITY [None]
  - VOMITING [None]
  - HYPOAESTHESIA [None]
  - VASCULITIS [None]
  - RASH ERYTHEMATOUS [None]
  - SCREAMING [None]
  - CAROTID ARTERY STENOSIS [None]
  - VARICELLA [None]
  - CORECTOPIA [None]
  - JOINT ANKYLOSIS [None]
  - SENSORY DISTURBANCE [None]
  - ANGER [None]
  - GAZE PALSY [None]
  - EPILEPSY [None]
  - CYST [None]
